FAERS Safety Report 10418483 (Version 2)
Quarter: 2014Q3

REPORT INFORMATION
  Report Type: Report from Study
  Country: AR (occurrence: AR)
  Receive Date: 20140829
  Receipt Date: 20140829
  Transmission Date: 20150326
  Serious: Yes (Other)
  Sender: FDA-Public Use
  Company Number: AR-ABBVIE-14K-007-1276518-00

PATIENT
  Age: 65 Year
  Sex: Female

DRUGS (1)
  1. HUMIRA [Suspect]
     Active Substance: ADALIMUMAB
     Indication: RHEUMATOID ARTHRITIS
     Route: 058
     Dates: start: 20120613

REACTIONS (5)
  - Limb injury [Recovered/Resolved]
  - Fall [Unknown]
  - Joint swelling [Unknown]
  - Joint injury [Recovered/Resolved]
  - Meniscus injury [Unknown]

NARRATIVE: CASE EVENT DATE: 20140813
